FAERS Safety Report 8251464-7 (Version None)
Quarter: 2012Q1

REPORT INFORMATION
  Report Type: 
  Country: None (occurrence: None)
  Receive Date: 20120328
  Receipt Date: 20120316
  Transmission Date: 20120608
  Serious: Yes (Hospitalization)
  Sender: FDA-Public Use
  Company Number: AUR-APL-2011-00323

PATIENT
  Age: 84 Year
  Sex: Male
  Weight: 78.5 kg

DRUGS (16)
  1. METOPROLOL TARTRATE [Suspect]
     Indication: HYPERTENSION
     Dosage: 25 MG (12.5 MG, 2 IN 1 D), ORAL
     Route: 048
     Dates: start: 20090101
  2. NORVASC [Concomitant]
  3. MULTI-VITAMINS [Concomitant]
  4. VYTORIN [Concomitant]
  5. PROSCAR [Concomitant]
  6. CHONDROITIN/GLUCOSAMINE (CHONDROITIN W/GLUCOSAMINE) [Concomitant]
  7. IRON [Concomitant]
  8. PREGABALIN [Suspect]
     Indication: DIABETIC NEUROPATHY
     Dosage: (150 MG,1 D),ORAL
     Route: 048
     Dates: start: 20101203
  9. HYDROCHLOROTHIAZIDE [Concomitant]
  10. METFORMIN HCL [Concomitant]
  11. CALCIUM CARBONATE [Concomitant]
  12. ASPIRIN [Concomitant]
  13. CALCIUM CARBONATE [Concomitant]
  14. ACCUPRIL [Concomitant]
  15. IBANDRONATE SODIUM [Concomitant]
  16. CALCITRIOL [Concomitant]

REACTIONS (3)
  - DEHYDRATION [None]
  - NERVOUSNESS [None]
  - HYPOTENSION [None]
